FAERS Safety Report 14621362 (Version 2)
Quarter: 2018Q1

REPORT INFORMATION
  Report Type: Report from Study
  Country: AT (occurrence: AT)
  Receive Date: 20180310
  Receipt Date: 20180315
  Transmission Date: 20180509
  Serious: Yes (Other)
  Sender: FDA-Public Use
  Company Number: AT-TAKEDA-2016MPI006423

PATIENT
  Age: 71 Year
  Sex: Female

DRUGS (17)
  1. IXAZOMIB [Suspect]
     Active Substance: IXAZOMIB
     Indication: PLASMA CELL MYELOMA
     Dosage: UNK
     Route: 065
     Dates: start: 20160506, end: 20160708
  2. ZOLEDRONIC ACID. [Concomitant]
     Active Substance: ZOLEDRONIC ACID
     Dosage: UNK
     Route: 065
  3. REVLIMID [Suspect]
     Active Substance: LENALIDOMIDE
     Indication: PLASMA CELL MYELOMA
     Dosage: 25 MG, UNK
     Route: 048
     Dates: start: 201605
  4. REVLIMID [Suspect]
     Active Substance: LENALIDOMIDE
     Dosage: UNK
     Route: 048
     Dates: start: 201407, end: 201801
  5. VITAMINS WITH MINERALS [Concomitant]
     Active Substance: MINERALS\VITAMINS
     Dosage: UNK
     Route: 065
  6. OLEOVIT-D3 [Concomitant]
     Dosage: UNK
     Route: 065
  7. FAMCICLOVIR. [Concomitant]
     Active Substance: FAMCICLOVIR
     Dosage: UNK
     Route: 065
  8. PANTOLOC                           /01263204/ [Concomitant]
     Active Substance: PANTOPRAZOLE SODIUM
     Dosage: UNK
     Route: 065
  9. DEXAMETHASONE. [Suspect]
     Active Substance: DEXAMETHASONE
     Indication: PLASMA CELL MYELOMA
     Dosage: 20 MG, UNK
     Route: 048
     Dates: start: 201605, end: 201801
  10. URBASON                            /00049601/ [Concomitant]
     Active Substance: METHYLPREDNISOLONE
     Indication: PRODUCT USED FOR UNKNOWN INDICATION
     Dosage: UNK
     Route: 048
  11. MAGNOSOLV [Concomitant]
     Dosage: UNK
     Route: 065
  12. IXAZOMIB [Suspect]
     Active Substance: IXAZOMIB
     Dosage: 4 MG, UNK
     Route: 048
     Dates: start: 201605, end: 201801
  13. KALIORAL                           /00279301/ [Concomitant]
     Dosage: UNK
     Route: 065
  14. DURAGESIC [Concomitant]
     Active Substance: FENTANYL
     Dosage: UNK
     Route: 065
  15. THROMBO ASS [Concomitant]
     Active Substance: ASPIRIN
     Dosage: UNK
     Route: 065
  16. ZARZIO [Concomitant]
     Active Substance: FILGRASTIM
     Dosage: UNK
     Route: 065
  17. SIMVASTATIN. [Concomitant]
     Active Substance: SIMVASTATIN
     Dosage: UNK
     Route: 065

REACTIONS (5)
  - Cytopenia [Unknown]
  - Diarrhoea [Unknown]
  - Nausea [Unknown]
  - Rash [Unknown]
  - Cerebrovascular accident [Unknown]

NARRATIVE: CASE EVENT DATE: 201605
